FAERS Safety Report 7150042-0 (Version None)
Quarter: 2010Q4

REPORT INFORMATION
  Report Type: 
  Country: None (occurrence: None)
  Receive Date: 20101210
  Receipt Date: 20101206
  Transmission Date: 20110411
  Serious: No
  Sender: FDA-Public Use
  Company Number: US-PFIZER INC-2010165482

PATIENT
  Sex: Male
  Weight: 143 kg

DRUGS (5)
  1. NEURONTIN [Suspect]
     Indication: DIABETIC NEUROPATHY
     Dosage: 300 MG, 3X/DAY
     Route: 048
  2. LISINOPRIL [Concomitant]
     Dosage: 20 MG, 1X/DAY
  3. OMEPRAZOLE [Concomitant]
     Dosage: 40 MG, 2X/DAY
  4. METFORMIN [Concomitant]
     Indication: TYPE 1 DIABETES MELLITUS
     Dosage: 500 MG, 2X/DAY
  5. INSULIN [Concomitant]
     Indication: TYPE 1 DIABETES MELLITUS
     Dosage: UNK

REACTIONS (2)
  - FATIGUE [None]
  - SOMNOLENCE [None]
